FAERS Safety Report 9462083 (Version 1)
Quarter: 2013Q3

REPORT INFORMATION
  Report Type: Spontaneous
  Country: US (occurrence: None)
  Receive Date: 20130815
  Receipt Date: 20130815
  Transmission Date: 20140515
  Serious: Yes (Hospitalization)
  Sender: FDA-Public Use
  Company Number: None

PATIENT
  Age: 76 Year
  Sex: Female
  Weight: 61 kg

DRUGS (13)
  1. XARELTO [Suspect]
     Route: 048
  2. COUMADIN [Suspect]
     Route: 048
  3. BACTRIM [Suspect]
  4. ARIMIDEX [Concomitant]
  5. FENOFIBRATE [Concomitant]
  6. SIMVASTATIN [Concomitant]
  7. TRAMADOL [Concomitant]
  8. LIORESAL [Concomitant]
  9. BACLOFEN [Concomitant]
  10. DIGOXIN [Concomitant]
  11. DILTIAZEM [Concomitant]
  12. HYDROCODONE [Concomitant]
  13. ZOFARN [Concomitant]

REACTIONS (5)
  - Cardiac failure congestive [None]
  - Atrial fibrillation [None]
  - Sepsis [None]
  - Retroperitoneal haematoma [None]
  - Treatment noncompliance [None]
